FAERS Safety Report 21025172 (Version 15)
Quarter: 2022Q4

REPORT INFORMATION
  Report Type: Report from Study
  Country: US (occurrence: None)
  Receive Date: 20220630
  Receipt Date: 20221104
  Transmission Date: 20230113
  Serious: Yes (Hospitalization)
  Sender: FDA-Public Use
  Company Number: US-ROCHE-3124060

PATIENT
  Age: 72 Year
  Sex: Male
  Weight: 125.6 kg

DRUGS (107)
  1. COBIMETINIB [Suspect]
     Active Substance: COBIMETINIB
     Indication: Malignant melanoma
     Dosage: START DATE OF MOST RECENT DOSE (20 MG) OF STUDY DRUG PRIOR TO SAE 18/JUN/2022
     Route: 048
     Dates: start: 20220607
  2. INSULIN ASPART [Concomitant]
     Active Substance: INSULIN ASPART
     Route: 058
  3. ACETAMINOPHEN [Concomitant]
     Active Substance: ACETAMINOPHEN
     Indication: Pain
     Route: 048
     Dates: start: 2020, end: 20220725
  4. ACETAMINOPHEN [Concomitant]
     Active Substance: ACETAMINOPHEN
     Indication: Pyrexia
     Dosage: DO NOT EXCEED 4000MG/ DAY
     Route: 048
  5. ACETAMINOPHEN [Concomitant]
     Active Substance: ACETAMINOPHEN
     Route: 048
     Dates: start: 20220702, end: 20220702
  6. ACETAMINOPHEN [Concomitant]
     Active Substance: ACETAMINOPHEN
     Route: 048
     Dates: start: 20220620, end: 20220620
  7. VITAMIN C [Concomitant]
     Active Substance: ASCORBIC ACID
     Route: 048
     Dates: start: 2020
  8. ASPIRIN [Concomitant]
     Active Substance: ASPIRIN
     Indication: Deep vein thrombosis
     Route: 048
     Dates: start: 2012, end: 20220725
  9. ASPIRIN [Concomitant]
     Active Substance: ASPIRIN
     Dosage: DO NOT CHEW TABLET
     Route: 048
     Dates: start: 20220712, end: 20220714
  10. ASPIRIN [Concomitant]
     Active Substance: ASPIRIN
     Dosage: DO NOT CHEW TABLET
     Route: 048
     Dates: start: 2012, end: 20220816
  11. COLACE [Concomitant]
     Active Substance: DOCUSATE SODIUM
     Indication: Constipation
     Route: 048
     Dates: start: 2020
  12. LEVOTHYROXINE [Concomitant]
     Active Substance: LEVOTHYROXINE
     Indication: Hypothyroidism
     Dosage: DOSE 200 OTHER
     Route: 048
     Dates: start: 2021
  13. LEVOTHYROXINE [Concomitant]
     Active Substance: LEVOTHYROXINE
     Route: 048
     Dates: start: 2012
  14. LEVOTHYROXINE [Concomitant]
     Active Substance: LEVOTHYROXINE
     Route: 048
  15. LEVOTHYROXINE [Concomitant]
     Active Substance: LEVOTHYROXINE
     Route: 048
  16. LEVOTHYROXINE [Concomitant]
     Active Substance: LEVOTHYROXINE
     Dosage: 25 OTHER
     Route: 048
     Dates: start: 2020
  17. LEVOTHYROXINE [Concomitant]
     Active Substance: LEVOTHYROXINE
     Route: 048
     Dates: start: 20220710, end: 20220711
  18. LEVOTHYROXINE [Concomitant]
     Active Substance: LEVOTHYROXINE
     Route: 048
     Dates: start: 20220712, end: 20220714
  19. LORATADINE [Concomitant]
     Active Substance: LORATADINE
     Indication: Seasonal allergy
     Route: 048
     Dates: start: 2020
  20. MELATONIN [Concomitant]
     Active Substance: MELATONIN
     Indication: Insomnia
     Route: 048
     Dates: start: 2020
  21. MELATONIN [Concomitant]
     Active Substance: MELATONIN
     Dates: start: 20220727, end: 20220728
  22. MELATONIN [Concomitant]
     Active Substance: MELATONIN
     Route: 048
     Dates: start: 20220728, end: 20220730
  23. MELATONIN [Concomitant]
     Active Substance: MELATONIN
     Route: 048
     Dates: start: 20220711, end: 20220713
  24. OMEPRAZOLE [Concomitant]
     Active Substance: OMEPRAZOLE
     Indication: Gastrooesophageal reflux disease
     Route: 048
     Dates: start: 2020, end: 20220525
  25. OXYCODONE [Concomitant]
     Active Substance: OXYCODONE
     Indication: Pain
     Route: 048
     Dates: start: 2020, end: 20220809
  26. MIRALAX [Concomitant]
     Active Substance: POLYETHYLENE GLYCOL 3350
     Indication: Constipation
     Route: 048
     Dates: start: 2020, end: 20220830
  27. ONDANSETRON [Concomitant]
     Active Substance: ONDANSETRON
     Indication: Nausea
     Route: 048
     Dates: start: 20220603
  28. ONDANSETRON [Concomitant]
     Active Substance: ONDANSETRON
     Indication: Vomiting
     Route: 048
     Dates: start: 20220614
  29. ONDANSETRON [Concomitant]
     Active Substance: ONDANSETRON
     Route: 048
     Dates: start: 20220603
  30. ONDANSETRON [Concomitant]
     Active Substance: ONDANSETRON
     Route: 042
     Dates: start: 20220702, end: 20220702
  31. ONDANSETRON [Concomitant]
     Active Substance: ONDANSETRON
     Route: 042
     Dates: start: 20220617, end: 20220617
  32. LORAZEPAM [Concomitant]
     Active Substance: LORAZEPAM
     Indication: Nausea
     Route: 048
     Dates: start: 20220617, end: 20220620
  33. LORAZEPAM [Concomitant]
     Active Substance: LORAZEPAM
     Indication: Anxiety
     Route: 048
     Dates: start: 20220601
  34. LORAZEPAM [Concomitant]
     Active Substance: LORAZEPAM
     Route: 048
     Dates: start: 20220725
  35. BENADRYL [Concomitant]
     Active Substance: DIPHENHYDRAMINE HYDROCHLORIDE
     Indication: Pruritus
     Route: 048
     Dates: start: 20220622
  36. ERGOCALCIFEROL [Concomitant]
     Active Substance: ERGOCALCIFEROL
     Route: 048
     Dates: start: 2020
  37. CARBOXYMETHYLCELLULOSE [Concomitant]
     Active Substance: CARBOXYMETHYLCELLULOSE
     Indication: Dry eye
     Route: 047
     Dates: start: 20210517
  38. CARBOXYMETHYLCELLULOSE [Concomitant]
     Active Substance: CARBOXYMETHYLCELLULOSE
     Dosage: 1 UNKNOWN
     Route: 047
     Dates: start: 20220725
  39. CLOBETASOL [Concomitant]
     Active Substance: CLOBETASOL
     Indication: Rash
  40. DEXTROSE [Concomitant]
     Active Substance: DEXTROSE
     Route: 048
  41. DEXTROSE [Concomitant]
     Active Substance: DEXTROSE
     Route: 048
     Dates: start: 20220725
  42. KETOCONAZOLE [Concomitant]
     Active Substance: KETOCONAZOLE
  43. MONTELUKAST [Concomitant]
     Active Substance: MONTELUKAST SODIUM
  44. MUPIROCIN [Concomitant]
     Active Substance: MUPIROCIN
     Indication: Infection
  45. POLYETHYLENE GLYCOL [Concomitant]
     Active Substance: POLYETHYLENE GLYCOL
     Dosage: 1 CAPSULE
     Route: 048
     Dates: start: 2020, end: 20220830
  46. SIMVASTATIN [Concomitant]
     Active Substance: SIMVASTATIN
     Indication: Hyperlipidaemia
     Dosage: TAKE ONE-HALE TABLET BY MOUTH
     Route: 048
  47. SIMVASTATIN [Concomitant]
     Active Substance: SIMVASTATIN
     Route: 048
     Dates: start: 2012
  48. FLOMAX [Concomitant]
     Active Substance: TAMSULOSIN HYDROCHLORIDE
     Indication: Micturition urgency
     Dosage: 1 CAPSULE
     Route: 048
     Dates: start: 2020
  49. XYLITOL [Concomitant]
     Active Substance: XYLITOL
     Dosage: ORAL DISC DISSOLVE 1 DISC IN CHEEK AND GUM ACTIVE UNTIL DISSOLVED EVERY HOUR AS NEEDED DO NOT CHEW.
     Route: 048
     Dates: start: 20220725
  50. DOCUSATE [Concomitant]
     Active Substance: DOCUSATE
     Indication: Constipation
     Route: 048
     Dates: start: 20220711, end: 20220713
  51. GABAPENTIN [Concomitant]
     Active Substance: GABAPENTIN
     Route: 048
     Dates: start: 20210210
  52. GABAPENTIN [Concomitant]
     Active Substance: GABAPENTIN
     Route: 048
     Dates: start: 20220725
  53. GABAPENTIN [Concomitant]
     Active Substance: GABAPENTIN
     Route: 048
     Dates: start: 20220711, end: 20220713
  54. TYLENOL [Concomitant]
     Active Substance: ACETAMINOPHEN
     Indication: Pyrexia
     Route: 048
     Dates: start: 20220617
  55. TYLENOL [Concomitant]
     Active Substance: ACETAMINOPHEN
     Indication: Pain
  56. FINASTERIDE [Concomitant]
     Active Substance: FINASTERIDE
     Indication: Benign prostatic hyperplasia
     Route: 048
     Dates: start: 20220805
  57. FINASTERIDE [Concomitant]
     Active Substance: FINASTERIDE
     Route: 048
     Dates: start: 20220713
  58. ZOLPIDEM [Concomitant]
     Active Substance: ZOLPIDEM TARTRATE
     Indication: Insomnia
     Route: 048
     Dates: start: 20220701
  59. ARTIFICIAL SALIVA [Concomitant]
     Indication: Dry mouth
     Route: 048
     Dates: start: 20220809
  60. ARTIFICIAL SALIVA [Concomitant]
     Route: 048
     Dates: start: 20220809
  61. HYDROCODONE [Concomitant]
     Active Substance: HYDROCODONE
     Indication: Tumour pain
     Route: 048
     Dates: start: 20220725
  62. ASCORBIC ACID [Concomitant]
     Active Substance: ASCORBIC ACID
     Route: 048
     Dates: start: 20220725
  63. ASCORBIC ACID [Concomitant]
     Active Substance: ASCORBIC ACID
     Route: 048
     Dates: start: 2020
  64. CHOLECALCIFEROL [Concomitant]
     Active Substance: CHOLECALCIFEROL
     Dosage: 5 TABLET
     Route: 048
     Dates: start: 20220725
  65. CHOLECALCIFEROL [Concomitant]
     Active Substance: CHOLECALCIFEROL
     Dosage: 1000 U
     Route: 048
     Dates: start: 20200109
  66. PEPTO-BISMOL ULTRA [Concomitant]
     Active Substance: BISMUTH SUBSALICYLATE
     Indication: Diarrhoea
     Route: 048
     Dates: start: 20220612, end: 20220725
  67. SODIUM CHLORIDE [Concomitant]
     Active Substance: SODIUM CHLORIDE
     Indication: Hypotension
     Route: 042
     Dates: start: 20220726, end: 20220726
  68. SODIUM CHLORIDE [Concomitant]
     Active Substance: SODIUM CHLORIDE
     Indication: Vomiting
     Route: 042
     Dates: start: 20220726, end: 20220730
  69. SODIUM CHLORIDE [Concomitant]
     Active Substance: SODIUM CHLORIDE
     Route: 042
     Dates: start: 20220527, end: 20220527
  70. SODIUM CHLORIDE [Concomitant]
     Active Substance: SODIUM CHLORIDE
     Dosage: 75 ML/H
     Route: 042
     Dates: start: 20220705, end: 20220709
  71. SODIUM CHLORIDE [Concomitant]
     Active Substance: SODIUM CHLORIDE
     Route: 042
     Dates: start: 20220702, end: 20220702
  72. SODIUM CHLORIDE [Concomitant]
     Active Substance: SODIUM CHLORIDE
     Route: 042
     Dates: start: 20220622, end: 20220622
  73. SODIUM CHLORIDE [Concomitant]
     Active Substance: SODIUM CHLORIDE
     Dosage: 150 ML/H
     Route: 042
     Dates: start: 20220622, end: 20220622
  74. SODIUM CHLORIDE [Concomitant]
     Active Substance: SODIUM CHLORIDE
     Route: 042
     Dates: start: 20220617, end: 20220617
  75. SODIUM CHLORIDE [Concomitant]
     Active Substance: SODIUM CHLORIDE
     Route: 042
     Dates: start: 20220620, end: 20220620
  76. SODIUM CHLORIDE [Concomitant]
     Active Substance: SODIUM CHLORIDE
     Dosage: 150 ML/H
     Route: 042
     Dates: start: 20220622, end: 20220622
  77. ATARAX [Concomitant]
     Active Substance: HYDROXYZINE HYDROCHLORIDE
     Indication: Anxiety
  78. NORCO [Concomitant]
     Active Substance: ACETAMINOPHEN\HYDROCODONE BITARTRATE
     Indication: Pain
     Dosage: 1 TABLET
     Route: 048
     Dates: start: 20220710, end: 20220714
  79. ROCEPHIN [Concomitant]
     Active Substance: CEFTRIAXONE SODIUM
     Route: 042
     Dates: start: 20220726, end: 20220817
  80. ROCEPHIN [Concomitant]
     Active Substance: CEFTRIAXONE SODIUM
     Route: 042
     Dates: start: 20220712, end: 20220714
  81. DEXTROSE [Concomitant]
     Active Substance: DEXTROSE
     Indication: Type 2 diabetes mellitus
     Dosage: 999 ML/H
     Route: 042
     Dates: start: 20220620, end: 20220620
  82. GLUCAGEN [Concomitant]
     Active Substance: GLUCAGON HYDROCHLORIDE
  83. ATIVAN [Concomitant]
     Active Substance: LORAZEPAM
     Indication: Anxiety
  84. MORPHINE [Concomitant]
     Active Substance: MORPHINE
     Indication: Pain
     Route: 042
     Dates: start: 20220727, end: 20220727
  85. ZOFRAN [Concomitant]
     Active Substance: ONDANSETRON HYDROCHLORIDE
     Indication: Nausea
     Route: 042
     Dates: start: 20220728, end: 20220728
  86. ZOFRAN [Concomitant]
     Active Substance: ONDANSETRON HYDROCHLORIDE
     Indication: Vomiting
  87. PROTONIX [Concomitant]
     Active Substance: PANTOPRAZOLE SODIUM
     Route: 042
     Dates: start: 20220726, end: 20220730
  88. AMBIEN [Concomitant]
     Active Substance: ZOLPIDEM TARTRATE
     Route: 048
     Dates: start: 20220729, end: 20220729
  89. LOPERAMIDE [Concomitant]
     Active Substance: LOPERAMIDE
     Indication: Diarrhoea
     Route: 048
     Dates: start: 20220524, end: 20220725
  90. OPIUM TINCTURE [Concomitant]
     Active Substance: MORPHINE
     Indication: Diarrhoea
     Route: 048
     Dates: start: 20220526
  91. PREDNISONE [Concomitant]
     Active Substance: PREDNISONE
     Indication: Diarrhoea
     Dates: start: 202205, end: 20220523
  92. ALBUMIN HUMAN [Concomitant]
     Active Substance: ALBUMIN HUMAN
     Route: 042
     Dates: start: 20220707, end: 20220709
  93. LANTUS [Concomitant]
     Active Substance: INSULIN GLARGINE
     Indication: Type 2 diabetes mellitus
     Dosage: 12 U
     Route: 058
     Dates: start: 20220711, end: 20220712
  94. LANTUS [Concomitant]
     Active Substance: INSULIN GLARGINE
     Dosage: 15 U
     Route: 058
     Dates: start: 20220713, end: 20220713
  95. LANTUS [Concomitant]
     Active Substance: INSULIN GLARGINE
     Dosage: 20 U
     Route: 058
     Dates: start: 20220703, end: 20220704
  96. LANTUS [Concomitant]
     Active Substance: INSULIN GLARGINE
     Dosage: 22 U
     Route: 058
     Dates: start: 20220705, end: 20220705
  97. LANTUS [Concomitant]
     Active Substance: INSULIN GLARGINE
     Dosage: 30 U
     Route: 058
     Dates: start: 20220706, end: 20220706
  98. LANTUS [Concomitant]
     Active Substance: INSULIN GLARGINE
     Dosage: 32 U
     Route: 058
     Dates: start: 20220712, end: 20220712
  99. LANTUS [Concomitant]
     Active Substance: INSULIN GLARGINE
     Dosage: 35 U
     Route: 058
     Dates: start: 20220707, end: 20220708
  100. METHYLPREDNISOLONE [Concomitant]
     Active Substance: METHYLPREDNISOLONE
     Indication: Pyrexia
     Route: 042
     Dates: start: 20220620, end: 20220620
  101. LORAZEPAM [Concomitant]
     Active Substance: LORAZEPAM
     Indication: Vomiting
     Route: 048
     Dates: start: 20220617, end: 20220620
  102. PROMETHAZINE [Concomitant]
     Active Substance: PROMETHAZINE HYDROCHLORIDE
     Indication: Vomiting
     Route: 042
     Dates: start: 20220620, end: 20220620
  103. DIPHENHYDRAMINE [Concomitant]
     Active Substance: DIPHENHYDRAMINE
     Indication: Rash maculo-papular
     Route: 048
     Dates: start: 20220622, end: 20220719
  104. CETIRIZINE [Concomitant]
     Active Substance: CETIRIZINE HYDROCHLORIDE
     Indication: Rash maculo-papular
     Route: 048
     Dates: start: 20220622, end: 20220719
  105. TRIAMCINOLONE [Concomitant]
     Active Substance: TRIAMCINOLONE
     Indication: Rash maculo-papular
     Route: 061
     Dates: start: 20220622, end: 20220719
  106. KETOCONAZOLE [Concomitant]
     Active Substance: KETOCONAZOLE
     Indication: Rash maculo-papular
     Route: 061
     Dates: start: 20220622, end: 20220719
  107. CALCIUM GLUCONATE [Concomitant]
     Active Substance: CALCIUM GLUCONATE
     Indication: Hypocalcaemia
     Route: 042
     Dates: start: 20220622, end: 20220622

REACTIONS (4)
  - Asthenia [Recovered/Resolved]
  - Hypotension [Recovered/Resolved]
  - Cellulitis [Recovered/Resolved]
  - Blood creatine phosphokinase increased [Recovered/Resolved]

NARRATIVE: CASE EVENT DATE: 20220620
